FAERS Safety Report 8855751 (Version 1)
Quarter: 2012Q4

REPORT INFORMATION
  Report Type: Spontaneous
  Country: US (occurrence: None)
  Receive Date: 20121019
  Receipt Date: 20121019
  Transmission Date: 20130627
  Serious: No
  Sender: FDA-Public Use
  Company Number: None

PATIENT
  Age: 16 Year
  Sex: Male
  Weight: 73.03 kg

DRUGS (1)
  1. DEXEDRINE [Suspect]
     Route: 048
     Dates: start: 20121003

REACTIONS (2)
  - Logorrhoea [None]
  - Insomnia [None]
